FAERS Safety Report 8524072-8 (Version None)
Quarter: 2012Q3

REPORT INFORMATION
  Report Type: 
  Country: None (occurrence: None)
  Receive Date: 20120720
  Receipt Date: 20120712
  Transmission Date: 20120928
  Serious: Yes (Hospitalization)
  Sender: FDA-Public Use
  Company Number: US-JNJFOC-20120707063

PATIENT
  Age: 19 Year
  Sex: Female

DRUGS (4)
  1. REMICADE [Suspect]
     Route: 042
  2. REMICADE [Suspect]
     Indication: CROHN'S DISEASE
     Route: 042
  3. CLARITIN [Concomitant]
     Indication: PREMEDICATION
     Route: 065
  4. TYLENOL [Concomitant]
     Indication: PREMEDICATION
     Route: 065

REACTIONS (10)
  - TACHYPNOEA [None]
  - FACE OEDEMA [None]
  - TACHYCARDIA [None]
  - HYPERTENSION [None]
  - RASH [None]
  - INFUSION RELATED REACTION [None]
  - FEELING JITTERY [None]
  - WHEEZING [None]
  - CHEST DISCOMFORT [None]
  - PERIPHERAL COLDNESS [None]
